FAERS Safety Report 16318888 (Version 1)
Quarter: 2019Q2

REPORT INFORMATION
  Report Type: Spontaneous
  Country: US (occurrence: US)
  Receive Date: 20190516
  Receipt Date: 20190516
  Transmission Date: 20190711
  Serious: No
  Sender: FDA-Public Use
  Company Number: US-GALDERMA-US18042793

PATIENT
  Age: 19 Year
  Sex: Male

DRUGS (5)
  1. PROACTIV MD ADAPALENE ACNE TREATMENT [Suspect]
     Active Substance: ADAPALENE
     Indication: PRODUCT USED FOR UNKNOWN INDICATION
     Dosage: 0.1%
     Route: 061
     Dates: start: 20171001, end: 20180929
  2. PROACTIV PLUS PORE TARGETING TREATMENT [Concomitant]
     Active Substance: BENZOYL PEROXIDE
     Route: 061
     Dates: start: 20171001, end: 20180929
  3. PROACTIV REVITALIZING TONER [Concomitant]
     Active Substance: COSMETICS
     Route: 061
     Dates: start: 20171001, end: 20180929
  4. PROACTIV RENEWING CLEANSER [Concomitant]
     Active Substance: BENZOYL PEROXIDE
     Route: 061
     Dates: start: 20171001, end: 20180929
  5. PROACTIV REPAIRING TREATMENT [Concomitant]
     Active Substance: BENZOYL PEROXIDE
     Route: 061
     Dates: start: 20171001, end: 20180929

REACTIONS (5)
  - Inappropriate schedule of product administration [Recovered/Resolved]
  - Dry skin [Not Recovered/Not Resolved]
  - Skin irritation [Recovered/Resolved]
  - Skin exfoliation [Recovered/Resolved]
  - Overdose [Recovered/Resolved]

NARRATIVE: CASE EVENT DATE: 20171001
